FAERS Safety Report 17967205 (Version 3)
Quarter: 2020Q3

REPORT INFORMATION
  Report Type: Report from Study
  Country: US (occurrence: US)
  Receive Date: 20200701
  Receipt Date: 20200729
  Transmission Date: 20201103
  Serious: Yes (Death)
  Sender: FDA-Public Use
  Company Number: US-EMD SERONO-9171303

PATIENT
  Age: 60 Year
  Sex: Male

DRUGS (1)
  1. SEROSTIM [Suspect]
     Active Substance: SOMATROPIN
     Indication: CACHEXIA
     Dosage: 7? VIAL PACK
     Route: 058
     Dates: start: 20140722

REACTIONS (5)
  - Pneumonia fungal [Fatal]
  - HIV infection [Fatal]
  - Immunodeficiency [Fatal]
  - Hepatic cirrhosis [Fatal]
  - Respiratory failure [Fatal]

NARRATIVE: CASE EVENT DATE: 202005
